FAERS Safety Report 9269880 (Version 3)
Quarter: 2014Q2

REPORT INFORMATION
  Report Type: Spontaneous
  Country: JP (occurrence: JP)
  Receive Date: 20130503
  Receipt Date: 20140430
  Transmission Date: 20141212
  Serious: Yes (Life-Threatening, Hospitalization, Other)
  Sender: FDA-Public Use
  Company Number: JP-PFIZER INC-2013118433

PATIENT
  Age: 81 Year
  Sex: Male

DRUGS (15)
  1. LYRICA [Suspect]
     Dosage: 75 MG, 1X/DAY
     Route: 048
     Dates: start: 201304, end: 201304
  2. LYRICA [Interacting]
     Dosage: 75 MG, 2X/DAY
     Route: 048
     Dates: start: 201304
  3. LYRICA [Interacting]
     Dosage: 300 MG, 2X/DAY
     Route: 048
     Dates: start: 201304, end: 201304
  4. LYRICA [Interacting]
     Dosage: 300 MG, 2X/DAY
     Route: 048
     Dates: start: 20130412
  5. FENTANYL [Interacting]
     Dosage: UNK
  6. LENDORMIN [Concomitant]
     Dosage: UNK
  7. AMLODIN [Concomitant]
     Dosage: 2.5 MG, 1X/DAY
  8. LASIX [Concomitant]
     Dosage: 20 MG, 1X/DAY
     Route: 048
  9. AMARYL [Concomitant]
     Dosage: 3 MG, 1X/DAY
  10. MEVALOTIN [Concomitant]
     Dosage: 10 MG, 1X/DAY
  11. ZYLORIC [Concomitant]
     Dosage: 50 MG, 1X/DAY
  12. ALLELOCK [Concomitant]
     Dosage: 5 MG, 1X/DAY
  13. DEPAS [Concomitant]
     Dosage: 0.5 MG, 1X/DAY
  14. MYSLEE [Concomitant]
     Dosage: 5 MG, 1X/DAY
  15. PURSENNIDE [Concomitant]
     Dosage: 12 MG, 1X/DAY

REACTIONS (4)
  - Potentiating drug interaction [Recovered/Resolved]
  - Altered state of consciousness [Recovered/Resolved]
  - Respiratory arrest [Recovered/Resolved]
  - Miosis [Unknown]
